FAERS Safety Report 9521778 (Version 1)
Quarter: 2013Q1

REPORT INFORMATION
  Report Type: Spontaneous
  Country: US (occurrence: None)
  Receive Date: 20130305
  Receipt Date: 20130305
  Transmission Date: 20140127
  Serious: Yes (Other)
  Sender: FDA-Public Use
  Company Number: 163-21880-12072308

PATIENT
  Age: 66 Year
  Sex: Female

DRUGS (4)
  1. REVLIMID (LENALIDOMIDE) (CAPSULES) [Suspect]
     Indication: PLASMA CELL MYELOMA
     Dosage: 14 IN 14 D
     Route: 048
     Dates: start: 20120706
  2. DEXAMETHASONE (DEXAMETHASONE) (UNKNOWN) [Concomitant]
  3. HYDROCODONE-ACETAMINOPHEN (VICODIN) (UNKNOWN) [Concomitant]
  4. TYLENOL EXTRA STRENGTH ARTHRITIS PAIN (PARACETAMOL) (UNKNOWN) [Concomitant]

REACTIONS (1)
  - Renal impairment [None]
